FAERS Safety Report 10672800 (Version 4)
Quarter: 2015Q3

REPORT INFORMATION
  Report Type: Report from Study
  Country: FR (occurrence: FR)
  Receive Date: 20141223
  Receipt Date: 20150724
  Transmission Date: 20151125
  Serious: Yes (Other)
  Sender: FDA-Public Use
  Company Number: FR-B.I. PHARMACEUTICALS,INC./RIDGEFIELD-2014-BI-60813II

PATIENT
  Age: 53 Year
  Sex: Female

DRUGS (16)
  1. BIBF 1120 [Suspect]
     Active Substance: NINTEDANIB
     Indication: FALLOPIAN TUBE CANCER
  2. SERESTA [Concomitant]
     Active Substance: OXAZEPAM
     Indication: PRODUCT USED FOR UNKNOWN INDICATION
     Route: 048
  3. BIBF 1120 [Suspect]
     Active Substance: NINTEDANIB
     Indication: MALIGNANT PERITONEAL NEOPLASM
  4. PACLITAXEL. [Concomitant]
     Active Substance: PACLITAXEL
     Indication: OVARIAN CANCER
     Dosage: DOSE PER APPLICATION:175 MG/M2
     Route: 065
     Dates: start: 20141031
  5. PACLITAXEL. [Concomitant]
     Active Substance: PACLITAXEL
     Indication: FALLOPIAN TUBE CANCER
  6. CARBOPLATINE [Concomitant]
     Active Substance: CARBOPLATIN
     Indication: FALLOPIAN TUBE CANCER
  7. CARBOPLATINE [Concomitant]
     Active Substance: CARBOPLATIN
     Indication: OVARIAN CANCER
     Route: 065
     Dates: start: 20141031
  8. IMOVANE [Concomitant]
     Active Substance: ZOPICLONE
     Indication: PSYCHOTHERAPY
     Dosage: 7.5 MG, 1 CUP AU COUCHER (AT BEDTIME)
     Route: 065
  9. XANAX [Concomitant]
     Active Substance: ALPRAZOLAM
     Indication: PSYCHOTHERAPY
     Dosage: 0.5 ANZ
     Route: 065
  10. DEXAMETHASONE. [Concomitant]
     Active Substance: DEXAMETHASONE
     Indication: PREMEDICATION
     Dosage: STRENGTH: 20 MG
     Route: 065
  11. URBANYL [Concomitant]
     Active Substance: CLOBAZAM
     Indication: PRODUCT USED FOR UNKNOWN INDICATION
     Route: 048
  12. BIBF 1120 [Suspect]
     Active Substance: NINTEDANIB
     Indication: OVARIAN CANCER
     Route: 065
     Dates: start: 20141101, end: 20141212
  13. ATARAX [Concomitant]
     Active Substance: HYDROXYZINE\HYDROXYZINE HYDROCHLORIDE
     Indication: PRODUCT USED FOR UNKNOWN INDICATION
     Route: 048
  14. SEROPLEX [Concomitant]
     Active Substance: ESCITALOPRAM OXALATE
     Indication: PRODUCT USED FOR UNKNOWN INDICATION
     Route: 048
  15. CARBOPLATINE [Concomitant]
     Active Substance: CARBOPLATIN
     Indication: MALIGNANT PERITONEAL NEOPLASM
  16. PACLITAXEL. [Concomitant]
     Active Substance: PACLITAXEL
     Indication: MALIGNANT PERITONEAL NEOPLASM

REACTIONS (2)
  - Papilloedema [Not Recovered/Not Resolved]
  - Jugular vein thrombosis [Not Recovered/Not Resolved]

NARRATIVE: CASE EVENT DATE: 20141121
